FAERS Safety Report 6065804-0 (Version None)
Quarter: 2009Q1

REPORT INFORMATION
  Report Type: 
  Country: None (occurrence: None)
  Receive Date: 20090205
  Receipt Date: 20090120
  Transmission Date: 20090719
  Serious: No
  Sender: FDA-Public Use
  Company Number: US-BAYER-200911070NA

PATIENT
  Age: 76 Year
  Sex: Male

DRUGS (3)
  1. LEVITRA [Suspect]
     Indication: SEXUAL DYSFUNCTION
     Dosage: TOTAL DAILY DOSE: 20 MG  UNIT DOSE: 10 MG
     Route: 048
     Dates: start: 20081231
  2. DIOVAN [Concomitant]
  3. CADUET [Concomitant]

REACTIONS (1)
  - ERECTILE DYSFUNCTION [None]
